FAERS Safety Report 15284111 (Version 2)
Quarter: 2018Q3

REPORT INFORMATION
  Report Type: Spontaneous
  Country: US (occurrence: US)
  Receive Date: 20180816
  Receipt Date: 20180911
  Transmission Date: 20181010
  Serious: No
  Sender: FDA-Public Use
  Company Number: US-ASTRAZENECA-2018SF03623

PATIENT
  Age: 23316 Day
  Sex: Female

DRUGS (1)
  1. PULMICORT FLEXHALER [Suspect]
     Active Substance: BUDESONIDE
     Indication: ASTHMA
     Dosage: 180 MCG, TWO PUFFS TWICE A DAY
     Route: 055

REACTIONS (8)
  - Malaise [Unknown]
  - Device failure [Unknown]
  - Sinus disorder [Unknown]
  - Nasal congestion [Unknown]
  - Intentional product misuse [Unknown]
  - Ear disorder [Unknown]
  - Incorrect dose administered [Unknown]
  - Device malfunction [Unknown]

NARRATIVE: CASE EVENT DATE: 20180809
